FAERS Safety Report 13581482 (Version 1)
Quarter: 2017Q2

REPORT INFORMATION
  Report Type: Spontaneous
  Country: US (occurrence: US)
  Receive Date: 20170525
  Receipt Date: 20170525
  Transmission Date: 20170830
  Serious: Yes (Other)
  Sender: FDA-Public Use
  Company Number: US-GLAXOSMITHKLINE-US2017GSK077364

PATIENT
  Sex: Male

DRUGS (2)
  1. SELZENTRY [Suspect]
     Active Substance: MARAVIROC
     Dosage: 300 MG, U
  2. EPIVIR [Suspect]
     Active Substance: LAMIVUDINE

REACTIONS (3)
  - Asthenia [Unknown]
  - Speech disorder [Unknown]
  - Dialysis [Unknown]
